FAERS Safety Report 7820900-X (Version None)
Quarter: 2011Q4

REPORT INFORMATION
  Report Type: 
  Country: None (occurrence: None)
  Receive Date: 20111018
  Receipt Date: 20111011
  Transmission Date: 20120403
  Serious: Yes (Hospitalization)
  Sender: FDA-Public Use
  Company Number: US-GLAXOSMITHKLINE-A0936404A

PATIENT
  Sex: Female
  Weight: 78.2 kg

DRUGS (3)
  1. UNSPECIFIED MEDICATIONS [Concomitant]
  2. COREG [Suspect]
     Indication: HYPERTENSION
     Dosage: 12.5MG PER DAY
     Route: 048
     Dates: start: 20010101
  3. COUMADIN [Concomitant]

REACTIONS (6)
  - DYSPNOEA [None]
  - UPPER LIMB FRACTURE [None]
  - DIZZINESS [None]
  - ORTHOPNOEA [None]
  - FALL [None]
  - HEART RATE DECREASED [None]
